FAERS Safety Report 17084364 (Version 1)
Quarter: 2019Q4

REPORT INFORMATION
  Report Type: Spontaneous
  Country: CA (occurrence: CA)
  Receive Date: 20191127
  Receipt Date: 20191127
  Transmission Date: 20200122
  Serious: Yes (Hospitalization, Other)
  Sender: FDA-Public Use
  Company Number: CA-TEVA-2019-CA-1140930

PATIENT
  Age: 75 Year
  Sex: Female

DRUGS (26)
  1. HYDROXYCHLOROQUINE [Suspect]
     Active Substance: HYDROXYCHLOROQUINE
     Route: 065
  2. MYOCHRYSINE [Suspect]
     Active Substance: GOLD SODIUM THIOMALATE
     Indication: PRODUCT USED FOR UNKNOWN INDICATION
     Route: 030
  3. GENTEAL MILD [Concomitant]
     Active Substance: HYPROMELLOSE 2910 (4000 MPA.S)
  4. GABAPENTIN. [Suspect]
     Active Substance: GABAPENTIN
     Indication: PRODUCT USED FOR UNKNOWN INDICATION
     Dosage: 200 MILLIGRAM DAILY;
     Route: 048
  5. HYDROXYCHLOROQUINE [Suspect]
     Active Substance: HYDROXYCHLOROQUINE
     Indication: PRODUCT USED FOR UNKNOWN INDICATION
     Route: 065
  6. PLAQUENIL [Suspect]
     Active Substance: HYDROXYCHLOROQUINE SULFATE
     Indication: PRODUCT USED FOR UNKNOWN INDICATION
     Dosage: 400 MILLIGRAM DAILY;
     Route: 065
  7. ORENCIA [Suspect]
     Active Substance: ABATACEPT
     Route: 058
  8. ACTONEL [Concomitant]
     Active Substance: RISEDRONATE SODIUM
  9. NORTRIPTYLINE [Concomitant]
     Active Substance: NORTRIPTYLINE
  10. PREDNISONE. [Concomitant]
     Active Substance: PREDNISONE
  11. ACLASTA [Concomitant]
     Active Substance: ZOLEDRONIC ACID
  12. LOMOTIL [Concomitant]
     Active Substance: ATROPINE SULFATE\DIPHENOXYLATE HYDROCHLORIDE
  13. FENTANYL. [Suspect]
     Active Substance: FENTANYL
     Indication: PRODUCT USED FOR UNKNOWN INDICATION
     Route: 065
  14. OXYCONTIN [Suspect]
     Active Substance: OXYCODONE HYDROCHLORIDE
     Indication: PRODUCT USED FOR UNKNOWN INDICATION
     Route: 065
  15. ORENCIA [Suspect]
     Active Substance: ABATACEPT
     Indication: RHEUMATOID ARTHRITIS
     Route: 042
  16. TRAZODONE [Concomitant]
     Active Substance: TRAZODONE HYDROCHLORIDE
  17. FERROUS GLUCONATE [Concomitant]
     Active Substance: FERROUS GLUCONATE
  18. TYLENOL [Concomitant]
     Active Substance: ACETAMINOPHEN
  19. METHOTREXATE. [Suspect]
     Active Substance: METHOTREXATE
     Indication: RHEUMATOID ARTHRITIS
     Route: 058
  20. ENBREL [Suspect]
     Active Substance: ETANERCEPT
     Indication: RHEUMATOID ARTHRITIS
     Route: 058
  21. MIXED TOCOPHEROL VITAMIN E 400 IU [Concomitant]
     Active Substance: .ALPHA.-TOCOPHEROL ACETATE
  22. NEXIUM [Concomitant]
     Active Substance: ESOMEPRAZOLE MAGNESIUM
  23. ACTEMRA [Suspect]
     Active Substance: TOCILIZUMAB
     Indication: RHEUMATOID ARTHRITIS
     Route: 042
  24. SULFASALAZINE. [Suspect]
     Active Substance: SULFASALAZINE
     Indication: RHEUMATOID ARTHRITIS
     Dosage: 2.5 GRAM DAILY;
     Route: 048
  25. ESOMEPRAZOLE. [Concomitant]
     Active Substance: ESOMEPRAZOLE MAGNESIUM
  26. NASONEX [Concomitant]
     Active Substance: MOMETASONE FUROATE

REACTIONS (43)
  - Arthralgia [Unknown]
  - Pleural thickening [Unknown]
  - Skin lesion [Unknown]
  - Crohn^s disease [Unknown]
  - Hypersensitivity [Unknown]
  - Nausea [Unknown]
  - Deformity [Unknown]
  - Drug hypersensitivity [Unknown]
  - Drug intolerance [Unknown]
  - Gastrointestinal disorder [Unknown]
  - Osteosclerosis [Unknown]
  - Presbyacusis [Unknown]
  - Blood magnesium increased [Unknown]
  - Bone cyst [Unknown]
  - Deafness neurosensory [Unknown]
  - Diarrhoea [Unknown]
  - Dry eye [Unknown]
  - Fatigue [Unknown]
  - Myocardial infarction [Unknown]
  - Osteopenia [Unknown]
  - Pain [Unknown]
  - Pain in extremity [Unknown]
  - Therapeutic product effect decreased [Unknown]
  - Adverse drug reaction [Unknown]
  - Exostosis [Unknown]
  - Mobility decreased [Unknown]
  - Musculoskeletal stiffness [Unknown]
  - Osteoarthritis [Unknown]
  - Contraindicated product administered [Unknown]
  - Cyst [Unknown]
  - Drug ineffective [Unknown]
  - Blood creatinine increased [Unknown]
  - Hospitalisation [Unknown]
  - Joint swelling [Unknown]
  - Renal impairment [Unknown]
  - Rheumatoid arthritis [Unknown]
  - Sleep disorder [Unknown]
  - Arthropathy [Unknown]
  - Blood potassium increased [Unknown]
  - Epigastric discomfort [Unknown]
  - Infection [Unknown]
  - Pleural fibrosis [Unknown]
  - Treatment failure [Unknown]
